FAERS Safety Report 24772361 (Version 1)
Quarter: 2024Q4

REPORT INFORMATION
  Report Type: Report from Study
  Country: US (occurrence: US)
  Receive Date: 20241224
  Receipt Date: 20241224
  Transmission Date: 20250115
  Serious: Yes (Hospitalization)
  Sender: ALEXION PHARMACEUTICALS
  Company Number: US-AstraZeneca-CH-00770234A

PATIENT
  Weight: 88.435 kg

DRUGS (8)
  1. BENRALIZUMAB [Suspect]
     Active Substance: BENRALIZUMAB
     Indication: Illness
     Dosage: 30 MILLIGRAM PER MILLILITRE, Q4W,  INJECT THE CONTENTS OF 1 PEN (30 MG) UNDER THE SKIN AT WEEKS 0, 4
  2. BENRALIZUMAB [Suspect]
     Active Substance: BENRALIZUMAB
     Dosage: 30 MILLIGRAM PER MILLILITRE, Q4W,  INJECT THE CONTENTS OF 1 PEN (30 MG) UNDER THE SKIN AT WEEKS 0, 4
     Route: 058
  3. BENRALIZUMAB [Suspect]
     Active Substance: BENRALIZUMAB
     Dosage: 30 MILLIGRAM PER MILLILITRE, Q4W,  INJECT THE CONTENTS OF 1 PEN (30 MG) UNDER THE SKIN AT WEEKS 0, 4
  4. BENRALIZUMAB [Suspect]
     Active Substance: BENRALIZUMAB
     Dosage: 30 MILLIGRAM PER MILLILITRE, Q4W,  INJECT THE CONTENTS OF 1 PEN (30 MG) UNDER THE SKIN AT WEEKS 0, 4
     Route: 058
  5. BENRALIZUMAB [Suspect]
     Active Substance: BENRALIZUMAB
     Dosage: 30 MILLIGRAM PER MILLILITRE, Q8W, INJECT THE CONTENTS OF 1 PEN (30 MG) UNDER THE SKIN EVERY 8 WEEKS
  6. BENRALIZUMAB [Suspect]
     Active Substance: BENRALIZUMAB
     Dosage: 30 MILLIGRAM PER MILLILITRE, Q8W, INJECT THE CONTENTS OF 1 PEN (30 MG) UNDER THE SKIN EVERY 8 WEEKS
     Route: 058
  7. BENRALIZUMAB [Suspect]
     Active Substance: BENRALIZUMAB
     Dosage: 30 MILLIGRAM PER MILLILITRE, Q8W, INJECT THE CONTENTS OF 1 PEN (30 MG) UNDER THE SKIN EVERY 8 WEEKS
  8. BENRALIZUMAB [Suspect]
     Active Substance: BENRALIZUMAB
     Dosage: 30 MILLIGRAM PER MILLILITRE, Q8W, INJECT THE CONTENTS OF 1 PEN (30 MG) UNDER THE SKIN EVERY 8 WEEKS
     Route: 058

REACTIONS (2)
  - Influenza [Unknown]
  - Dyspnoea [Recovering/Resolving]
